FAERS Safety Report 4279007-3 (Version None)
Quarter: 2004Q1

REPORT INFORMATION
  Report Type: 
  Country: None (occurrence: None)
  Receive Date: 20040126
  Receipt Date: 20030121
  Transmission Date: 20041129
  Serious: Yes (Hospitalization, Other)
  Sender: FDA-Public Use
  Company Number: US-BRISTOL-MYERS SQUIBB COMPANY-12163507

PATIENT
  Age: 50 Year
  Sex: Male
  Weight: 117 kg

DRUGS (12)
  1. SERZONE [Suspect]
     Indication: DEPRESSION
     Dosage: STARTING DOSE 50 MG BID ON 10-JUN-97 AND DOSE RANGING FROM 50 MG DAILY TO 600 MG DAILY.
     Route: 048
     Dates: start: 19970610, end: 20020325
  2. XANAX [Suspect]
     Indication: ANXIETY
  3. XANAX [Suspect]
     Indication: DEPRESSION
  4. ZESTRIL [Concomitant]
  5. PAXIL [Concomitant]
  6. SEPTRA [Concomitant]
  7. DARVOCET [Concomitant]
  8. RESTORIL [Concomitant]
  9. TENORETIC 100 [Concomitant]
  10. VICODIN [Concomitant]
  11. NAPROSYN [Concomitant]
  12. MOTRIN [Concomitant]

REACTIONS (29)
  - ABDOMINAL PAIN UPPER [None]
  - ACTIVATED PARTIAL THROMBOPLASTIN TIME PROLONGED [None]
  - BACK PAIN [None]
  - CHOLANGITIS SCLEROSING [None]
  - COAGULOPATHY [None]
  - CONNECTIVE TISSUE DISORDER [None]
  - CYTOMEGALOVIRUS TEST POSITIVE [None]
  - DNA ANTIBODY POSITIVE [None]
  - EPSTEIN-BARR VIRUS ANTIBODY POSITIVE [None]
  - HAEMANGIOMA [None]
  - HAEMOGLOBIN DECREASED [None]
  - HEPATIC CIRRHOSIS [None]
  - HEPATIC ENCEPHALOPATHY [None]
  - HEPATIC FAILURE [None]
  - HEPATIC FIBROSIS [None]
  - HEPATIC NECROSIS [None]
  - HEPATITIS B SURFACE ANTIGEN POSITIVE [None]
  - HEPATITIS C ANTIBODY POSITIVE [None]
  - INTERNATIONAL NORMALISED RATIO INCREASED [None]
  - IRON DEFICIENCY [None]
  - MARROW HYPERPLASIA [None]
  - OCULAR ICTERUS [None]
  - PANCYTOPENIA [None]
  - PORTAL HYPERTENSIVE GASTROPATHY [None]
  - RENAL CYST [None]
  - RENAL FAILURE [None]
  - SPLENOMEGALY [None]
  - TREMOR [None]
  - VARICES OESOPHAGEAL [None]
